FAERS Safety Report 18269697 (Version 1)
Quarter: 2020Q3

REPORT INFORMATION
  Report Type: Report from Study
  Country: GB (occurrence: GB)
  Receive Date: 20200915
  Receipt Date: 20200915
  Transmission Date: 20201103
  Serious: Yes (Hospitalization)
  Sender: FDA-Public Use
  Company Number: GB-BAYER-2020-198343

PATIENT
  Age: 32 Year
  Sex: Male
  Weight: 83 kg

DRUGS (7)
  1. PLATELETS [Concomitant]
     Active Substance: HUMAN PLATELET, ALLOGENIC
     Indication: TRANSFUSION
     Dosage: 245 MILLILITRE TOTAL INTRA?AND POST?OPERATIVELY (UPTO 48 HOURS)
     Route: 065
     Dates: start: 20200706
  2. TRASYLOL [Suspect]
     Active Substance: APROTININ
     Indication: CORONARY ARTERY BYPASS
  3. CLOPIDOGREL [Concomitant]
     Active Substance: CLOPIDOGREL BISULFATE
     Indication: ANTIPLATELET THERAPY
     Dosage: UNK
     Route: 065
  4. RED BLOOD CELLS [Concomitant]
     Active Substance: HUMAN RED BLOOD CELL
     Indication: TRANSFUSION
     Dosage: 600 MILLILITRE TOTAL INTRA?AND POST?OPERATIVELY (UPTO 48 HOURS)
     Route: 065
     Dates: start: 20200706
  5. TRASYLOL [Suspect]
     Active Substance: APROTININ
     Indication: MITRAL VALVE REPLACEMENT
     Dosage: 600 MILILITRE TOTAL LOADING DOSE 2 MILLION KIU PUMP PRIMING DOSE 2 MILLION KIU
     Route: 065
     Dates: start: 20200706, end: 20200706
  6. WARFARIN [Concomitant]
     Active Substance: WARFARIN
     Indication: ANTICOAGULANT THERAPY
     Route: 065
  7. HEPARIN [Concomitant]
     Active Substance: HEPARIN SODIUM
     Indication: ANTICOAGULANT THERAPY
     Dosage: 50 KILO ?INTERNATIONAL UNIT TOTAL DURING SURGERY
     Route: 065
     Dates: start: 20200706, end: 20200706

REACTIONS (3)
  - Product use in unapproved indication [Unknown]
  - Off label use [Unknown]
  - Renal impairment [Recovered/Resolved with Sequelae]

NARRATIVE: CASE EVENT DATE: 20200706
